FAERS Safety Report 8102521-7 (Version None)
Quarter: 2012Q1

REPORT INFORMATION
  Report Type: 
  Country: None (occurrence: None)
  Receive Date: 20120126
  Receipt Date: 20120114
  Transmission Date: 20120608
  Serious: Yes (Congenital Anomaly)
  Sender: FDA-Public Use
  Company Number: US-GDP-12412824

PATIENT
  Sex: Female

DRUGS (4)
  1. M.V.I. [Concomitant]
  2. BOOSTRIX (DIPHTHERIA TOXOID; PERTUSSIS VACCINE ACELLULAR; TETANUS TOXO [Suspect]
     Indication: PROPHYLAXIS
     Dosage: (0.5 ML TOTAL TRANSPLACENTAL)
     Route: 064
     Dates: start: 20110525, end: 20110525
  3. CLOBETASOL PROPIONATE [Suspect]
     Dosage: (TOPICAL)
     Route: 061
  4. ALLEGRA /01314202/ [Concomitant]

REACTIONS (3)
  - PLAGIOCEPHALY [None]
  - MATERNAL DRUGS AFFECTING FOETUS [None]
  - CAESAREAN SECTION [None]
